FAERS Safety Report 5866825-0 (Version None)
Quarter: 2008Q3

REPORT INFORMATION
  Report Type: 
  Country: None (occurrence: None)
  Receive Date: 20080827
  Receipt Date: 20080818
  Transmission Date: 20090109
  Serious: Yes (Other)
  Sender: FDA-Public Use
  Company Number: 2008AP000274

PATIENT
  Age: 32 Year
  Sex: Female

DRUGS (6)
  1. PAROXETINE HCL [Suspect]
     Dosage: PO; 20 MG; PO; ORAL _LIQ; PO
     Route: 048
     Dates: end: 20050617
  2. PAROXETINE HCL [Suspect]
     Dosage: PO; 20 MG; PO; ORAL _LIQ; PO
     Route: 048
     Dates: start: 19960419
  3. PAROXETINE HCL [Suspect]
     Dosage: PO; 20 MG; PO; ORAL _LIQ; PO
     Route: 048
     Dates: start: 19980101
  4. PAROXETINE HCL [Suspect]
     Dosage: PO; 20 MG; PO; ORAL _LIQ; PO
     Route: 048
     Dates: start: 20010208
  5. PAROXETINE HCL [Suspect]
     Dosage: PO; 20 MG; PO; ORAL _LIQ; PO
     Route: 048
     Dates: start: 20050301
  6. AMITRIPTLINE HYDROCHLORIDE TAB [Concomitant]

REACTIONS (19)
  - ADVERSE DRUG REACTION [None]
  - AGITATION [None]
  - ALTERED VISUAL DEPTH PERCEPTION [None]
  - ANOREXIA [None]
  - ANXIETY [None]
  - CONFUSIONAL STATE [None]
  - DIARRHOEA [None]
  - DIZZINESS [None]
  - DRUG WITHDRAWAL SYNDROME [None]
  - FATIGUE [None]
  - INSOMNIA [None]
  - NAUSEA [None]
  - NIGHTMARE [None]
  - PARAESTHESIA [None]
  - SENSORY DISTURBANCE [None]
  - STRESS [None]
  - SUICIDAL IDEATION [None]
  - VISUAL IMPAIRMENT [None]
  - VOMITING [None]
